FAERS Safety Report 17096604 (Version 1)
Quarter: 2019Q4

REPORT INFORMATION
  Report Type: Spontaneous
  Country: GB (occurrence: GB)
  Receive Date: 20191202
  Receipt Date: 20191202
  Transmission Date: 20200122
  Serious: Yes (Hospitalization)
  Sender: FDA-Public Use
  Company Number: GB-TEVA-2019-GB-1143990

PATIENT
  Age: 27 Year
  Sex: Female

DRUGS (5)
  1. CYCLIZINE [Suspect]
     Active Substance: CYCLIZINE
     Dosage: UP TO THREE TIMES A DAY (50MG)
     Route: 048
  2. COLECALCIFEROL [Concomitant]
     Active Substance: CHOLECALCIFEROL
     Dosage: 400IU PER DAY
     Route: 048
  3. NAPROXEN. [Suspect]
     Active Substance: NAPROXEN
     Dosage: TWICE A DAY (500MG)
     Route: 048
  4. FOLIC ACID. [Concomitant]
     Active Substance: FOLIC ACID
     Dosage: 400 MICROGRAM PER DAY
     Route: 048
  5. SALATAC [Concomitant]
     Dosage: 1 DOSAGE FORM PER DAY
     Route: 061

REACTIONS (5)
  - Rash vesicular [Unknown]
  - Maternal exposure during pregnancy [Unknown]
  - Toxic epidermal necrolysis [Recovered/Resolved]
  - Stevens-Johnson syndrome [Recovered/Resolved]
  - Skin exfoliation [Unknown]

NARRATIVE: CASE EVENT DATE: 20190919
